FAERS Safety Report 18655049 (Version 1)
Quarter: 2020Q4

REPORT INFORMATION
  Report Type: Spontaneous
  Country: US (occurrence: US)
  Receive Date: 20201223
  Receipt Date: 20201223
  Transmission Date: 20210114
  Serious: No
  Sender: FDA-Public Use
  Company Number: None

PATIENT
  Age: 49 Year
  Sex: Male

DRUGS (2)
  1. MIRTAZAPINE. [Suspect]
     Active Substance: MIRTAZAPINE
     Indication: ANXIETY DISORDER
     Route: 049
     Dates: start: 20201216
  2. NALTREXONE 50 MG [Concomitant]
     Active Substance: NALTREXONE
     Dates: start: 20201216

REACTIONS (5)
  - Paranoia [None]
  - Nightmare [None]
  - Abnormal dreams [None]
  - Hallucination, visual [None]
  - Sleep disorder [None]

NARRATIVE: CASE EVENT DATE: 20201222
